FAERS Safety Report 25891084 (Version 1)
Quarter: 2025Q4

REPORT INFORMATION
  Report Type: Spontaneous
  Country: US (occurrence: US)
  Receive Date: 20251007
  Receipt Date: 20251007
  Transmission Date: 20260117
  Serious: Yes (Other)
  Sender: AMGEN
  Company Number: US-AMGEN-USASP2025198675

PATIENT
  Age: 9 Month
  Sex: Male

DRUGS (9)
  1. PREDNISONE [Suspect]
     Active Substance: PREDNISONE
     Indication: Langerhans^ cell histiocytosis
     Dosage: UNK
     Route: 065
  2. VINBLASTINE [Concomitant]
     Active Substance: VINBLASTINE
     Indication: Langerhans^ cell histiocytosis
  3. VINCRISTINE [Concomitant]
     Active Substance: VINCRISTINE
     Indication: Langerhans^ cell histiocytosis
  4. CYTARABINE [Concomitant]
     Active Substance: CYTARABINE
     Indication: Langerhans^ cell histiocytosis
  5. MERCAPTOPURINE [Concomitant]
     Active Substance: MERCAPTOPURINE
     Indication: Langerhans^ cell histiocytosis
  6. METHOTREXATE [Concomitant]
     Active Substance: METHOTREXATE
     Indication: Langerhans^ cell histiocytosis
  7. CLADRIBINE [Concomitant]
     Active Substance: CLADRIBINE
     Indication: Langerhans^ cell histiocytosis
  8. INDOMETHACIN [Concomitant]
     Active Substance: INDOMETHACIN
     Indication: Langerhans^ cell histiocytosis
  9. CLOFARABINE [Concomitant]
     Active Substance: CLOFARABINE
     Indication: Langerhans^ cell histiocytosis

REACTIONS (6)
  - Langerhans^ cell histiocytosis [Unknown]
  - Bone density decreased [Unknown]
  - Short stature [Unknown]
  - Spinal deformity [Unknown]
  - Drug ineffective for unapproved indication [Unknown]
  - Off label use [Unknown]
